FAERS Safety Report 6419311-3 (Version None)
Quarter: 2009Q4

REPORT INFORMATION
  Report Type: 
  Country: None (occurrence: None)
  Receive Date: 20091029
  Receipt Date: 20091026
  Transmission Date: 20100525
  Serious: Yes (Life-Threatening, Hospitalization)
  Sender: FDA-Public Use
  Company Number: FR-BRISTOL-MYERS SQUIBB COMPANY-14604698

PATIENT
  Age: 48 Year
  Sex: Male

DRUGS (5)
  1. REYATAZ [Suspect]
     Indication: HIV INFECTION
     Dosage: INTERRUPTED ON 23MAR09 REINTRODUCED IN APR09
     Route: 048
     Dates: start: 20050501
  2. TRIZIVIR [Suspect]
     Indication: HIV INFECTION
     Dosage: 2 D.F= 2 TABS/D, RESTARTED IN APR09
     Route: 048
     Dates: start: 20000101, end: 20090323
  3. NORVIR [Suspect]
     Indication: HIV INFECTION
     Dosage: 1 CAP/D. INTERRUPTED ON 23MAR09, REINTRODUCED IN APR09
     Route: 048
     Dates: start: 20000101
  4. IMOVANE [Concomitant]
     Dosage: 1 D.F= 1 TAB/D
     Dates: start: 20080101
  5. VOLTAREN [Concomitant]
     Dosage: VOLTARENE LP- 1 TAB/D
     Dates: start: 20090316

REACTIONS (1)
  - MYOCARDIAL INFARCTION [None]
